FAERS Safety Report 7493819-4 (Version None)
Quarter: 2011Q2

REPORT INFORMATION
  Report Type: 
  Country: None (occurrence: None)
  Receive Date: 20110513
  Receipt Date: 20110504
  Transmission Date: 20111010
  Serious: Yes (Other)
  Sender: FDA-Public Use
  Company Number: TRP_07705_2011

PATIENT

DRUGS (2)
  1. PEGINTERFERON ALFA (PEGYLATED INTERFERON ALPHA) [Suspect]
     Indication: HEPATITIS C
     Dosage: (DF)
  2. RIBAVIRIN [Suspect]
     Indication: HEPATITIS C
     Dosage: (DF)

REACTIONS (2)
  - INTERSTITIAL LUNG DISEASE [None]
  - PANCYTOPENIA [None]
